FAERS Safety Report 24660254 (Version 11)
Quarter: 2025Q2

REPORT INFORMATION
  Report Type: Spontaneous
  Country: FR (occurrence: FR)
  Receive Date: 20241125
  Receipt Date: 20250505
  Transmission Date: 20250717
  Serious: Yes (Other)
  Sender: GLAXOSMITHKLINE
  Company Number: None

PATIENT

DRUGS (25)
  1. VALACYCLOVIR HYDROCHLORIDE [Suspect]
     Active Substance: VALACYCLOVIR HYDROCHLORIDE
     Indication: Infection prophylaxis
     Dosage: 1 GRAM, QD
     Route: 048
     Dates: start: 20240812
  2. BLEOMYCIN SULFATE [Suspect]
     Active Substance: BLEOMYCIN SULFATE
     Indication: Hodgkin^s disease
     Dosage: 17.1 MG, QD
     Route: 042
     Dates: start: 20240812, end: 20240924
  3. METHYLPREDNISOLONE [Suspect]
     Active Substance: METHYLPREDNISOLONE
     Indication: Hodgkin^s disease
     Dosage: 20 MG, QD
     Route: 042
     Dates: start: 20240812
  4. DOXORUBICIN HYDROCHLORIDE [Suspect]
     Active Substance: DOXORUBICIN HYDROCHLORIDE
     Indication: Hodgkin^s disease
     Dosage: 43 MG, QD(43 MILLIGRAM, QD)
     Route: 042
     Dates: start: 20240812
  5. VINBLASTINE SULFATE [Suspect]
     Active Substance: VINBLASTINE SULFATE
     Indication: Hodgkin^s disease
     Dosage: 10.4 MG, QD
     Route: 042
     Dates: start: 20240812
  6. DACARBAZINE [Suspect]
     Active Substance: DACARBAZINE
     Indication: Hodgkin^s disease
     Dosage: 650 MG, QD
     Route: 042
     Dates: start: 20240812
  7. APREPITANT [Suspect]
     Active Substance: APREPITANT
     Indication: Vomiting
     Dosage: 160 MG, Q2W
     Route: 048
     Dates: start: 20240812
  8. APREPITANT [Suspect]
     Active Substance: APREPITANT
     Dosage: 320 MG, Q2W(160 MILLIGRAM, Q2WEEKS)
     Route: 048
     Dates: start: 20240812
  9. MORPHINE SULFATE [Suspect]
     Active Substance: MORPHINE SULFATE
     Indication: Pain
     Dosage: 5 MG, QD
     Route: 048
     Dates: start: 20240923
  10. MORPHINE SULFATE [Suspect]
     Active Substance: MORPHINE SULFATE
     Dosage: 20 MG, QD
     Route: 048
     Dates: start: 20240923
  11. POLYETHYLENE GLYCOLS [Suspect]
     Active Substance: POLYETHYLENE GLYCOLS
     Indication: Constipation
     Route: 048
     Dates: start: 20240812
  12. METOCLOPRAMIDE HYDROCHLORIDE [Suspect]
     Active Substance: METOCLOPRAMIDE HYDROCHLORIDE
     Indication: Nausea
     Dosage: 10 MG, QD
     Route: 048
     Dates: start: 20240812
  13. ONDANSETRON [Suspect]
     Active Substance: ONDANSETRON
     Indication: Vomiting
     Dosage: 6 DF, Q2W
     Route: 048
     Dates: start: 20240812
  14. ONDANSETRON [Suspect]
     Active Substance: ONDANSETRON
     Dosage: 6 DF, Q2W
     Route: 048
  15. ONDANSETRON [Suspect]
     Active Substance: ONDANSETRON
     Dosage: 6 DF, Q2W
     Route: 048
  16. ONDANSETRON [Suspect]
     Active Substance: ONDANSETRON
     Dosage: 6 DF, Q2W
     Route: 048
     Dates: start: 20240812
  17. BACTRIM [Suspect]
     Active Substance: SULFAMETHOXAZOLE\TRIMETHOPRIM
     Indication: Infection prophylaxis
     Dosage: 3 DF, Q2W
     Route: 048
     Dates: start: 20240812
  18. LEUCOVORIN CALCIUM [Suspect]
     Active Substance: LEUCOVORIN CALCIUM
     Indication: Vitamin supplementation
     Dosage: 2 DF, WE
     Route: 048
     Dates: start: 20240812
  19. LANSOPRAZOLE [Suspect]
     Active Substance: LANSOPRAZOLE
     Indication: Prophylaxis against gastrointestinal ulcer
     Dosage: 15 MG, QD
     Route: 048
     Dates: start: 20240909, end: 20241015
  20. LANSOPRAZOLE [Suspect]
     Active Substance: LANSOPRAZOLE
     Dosage: 15 MG, QD
     Route: 048
  21. ACETAMINOPHEN [Suspect]
     Active Substance: ACETAMINOPHEN
     Indication: Pain
     Dosage: 1 GRAM, QD
     Route: 048
  22. ACETAMINOPHEN [Suspect]
     Active Substance: ACETAMINOPHEN
     Indication: Vomiting
  23. LEUCOVORIN CALCIUM [Suspect]
     Active Substance: LEUCOVORIN CALCIUM
     Indication: Vitamin supplementation
     Dosage: 2 DF, WE(2 DOSAGE FORM, 1/WEEK)
     Route: 048
     Dates: start: 20240812
  24. SULFAMETHOXAZOLE\TRIMETHOPRIM [Suspect]
     Active Substance: SULFAMETHOXAZOLE\TRIMETHOPRIM
     Indication: Infection prophylaxis
     Dosage: 3 DF, Q2W
     Route: 048
  25. SULFAMETHOXAZOLE\TRIMETHOPRIM [Suspect]
     Active Substance: SULFAMETHOXAZOLE\TRIMETHOPRIM
     Dosage: 3 DF, WE (3 DOSAGE FORM, 1/WEEK)
     Route: 048

REACTIONS (1)
  - Neuropathy peripheral [Recovering/Resolving]
